FAERS Safety Report 20013554 (Version 1)
Quarter: 2021Q4

REPORT INFORMATION
  Report Type: Spontaneous
  Country: US (occurrence: US)
  Receive Date: 20211029
  Receipt Date: 20211029
  Transmission Date: 20220303
  Serious: Yes (Hospitalization)
  Sender: FDA-Public Use
  Company Number: US-UPSHER-SMITH LABORATORIES, LLC-2021USL00746

PATIENT
  Age: 59 Year
  Sex: Female

DRUGS (2)
  1. SUMATRIPTAN SUCCINATE [Suspect]
     Active Substance: SUMATRIPTAN SUCCINATE
     Indication: Migraine
     Dosage: HAD TAKEN PRODUCT 3 YEARS EARLIER
     Route: 065
  2. SUMATRIPTAN SUCCINATE [Suspect]
     Active Substance: SUMATRIPTAN SUCCINATE
     Dosage: 100 MG, ONCE
     Route: 048

REACTIONS (3)
  - Transient global amnesia [Recovered/Resolved]
  - Acute coronary syndrome [Recovered/Resolved]
  - Transient ischaemic attack [Recovered/Resolved]
